FAERS Safety Report 23221648 (Version 1)
Quarter: 2023Q4

REPORT INFORMATION
  Report Type: Spontaneous
  Country: US (occurrence: US)
  Receive Date: 20231123
  Receipt Date: 20231123
  Transmission Date: 20240109
  Serious: Yes (Hospitalization)
  Sender: FDA-Public Use
  Company Number: US-JUBILANT CADISTA PHARMACEUTICALS-2023US001483

PATIENT
  Age: 80 Year
  Sex: Female

DRUGS (1)
  1. VALACYCLOVIR [Suspect]
     Active Substance: VALACYCLOVIR HYDROCHLORIDE
     Indication: Herpes zoster
     Dosage: 1000 MG, 3 TIMES PER DAY (2 DOSES OF VALACYCLOVIR 1000 MG AT THE TIME OF PRESENTATION)

REACTIONS (13)
  - Catatonia [Recovered/Resolved]
  - Mental status changes [Recovered/Resolved]
  - Confusional state [Recovered/Resolved]
  - Distractibility [Recovered/Resolved]
  - Memory impairment [Recovered/Resolved]
  - Mutism [Recovered/Resolved]
  - Staring [Recovered/Resolved]
  - Posturing [Recovered/Resolved]
  - Grimacing [Recovered/Resolved]
  - Agitation [Recovered/Resolved]
  - Primitive reflex test [Recovered/Resolved]
  - Immobile [Recovered/Resolved]
  - Disorientation [Recovered/Resolved]
